FAERS Safety Report 9242220 (Version 1)
Quarter: 2013Q2

REPORT INFORMATION
  Report Type: Not Available
  Country: US (occurrence: US)
  Receive Date: 20130419
  Receipt Date: 20130419
  Transmission Date: 20140414
  Serious: No
  Sender: FDA-Public Use
  Company Number: -FOUGERA-2012FO001191

PATIENT
  Age: 4 Month
  Sex: Female

DRUGS (2)
  1. CLOBETASOL PROPIONATE [Suspect]
     Indication: EXPOSURE DURING BREAST FEEDING
     Route: 061
     Dates: start: 201202, end: 20120505
  2. CLOBETASOL PROPIONATE [Suspect]
     Indication: PRODUCT USED FOR UNKNOWN INDICATION
     Route: 061
     Dates: start: 201202, end: 20120505

REACTIONS (3)
  - Exposure during breast feeding [Recovered/Resolved]
  - Contusion [Recovered/Resolved]
  - Expired drug administered [Recovered/Resolved]
